FAERS Safety Report 5381624-4 (Version None)
Quarter: 2007Q3

REPORT INFORMATION
  Report Type: 
  Country: None (occurrence: None)
  Receive Date: 20070709
  Receipt Date: 20070627
  Transmission Date: 20080115
  Serious: Yes (Other)
  Sender: FDA-Public Use
  Company Number: PHEH2007US04323

PATIENT
  Age: 41 Year
  Sex: Female
  Weight: 49.705 kg

DRUGS (29)
  1. ZELNORM [Suspect]
     Indication: IRRITABLE BOWEL SYNDROME
     Dosage: 6 MG, QD
     Route: 048
     Dates: start: 20051017, end: 20070521
  2. TUBERCULIN PPD [Concomitant]
     Route: 023
     Dates: start: 20050425
  3. NYSTATIN [Concomitant]
     Dosage: UNK, QD
  4. LIDODERM [Concomitant]
     Dosage: Q12 HOURS OUT OF 24 HOURS
     Route: 062
  5. RESTASIS [Concomitant]
  6. ASMANEX TWISTHALER [Concomitant]
  7. MIRALAX [Concomitant]
     Dosage: 17 G, QD
     Route: 048
  8. OXYCONTIN [Concomitant]
     Indication: SPINAL COLUMN STENOSIS
     Dosage: 80 MG, BID
     Route: 048
     Dates: start: 20031215
  9. OXYCONTIN [Concomitant]
     Dosage: 80 MG, ONCE/SINGLE
     Route: 048
     Dates: start: 20070618, end: 20070618
  10. HYDROCODONE BITARTRATE + ACETAMINOPHEN [Concomitant]
     Indication: SPINAL COLUMN STENOSIS
     Dosage: 10/500 UNK, Q8H, PRN
     Route: 048
     Dates: start: 20040928
  11. LYRICA [Concomitant]
     Indication: SPINAL COLUMN STENOSIS
     Dosage: 75 MG, BID
     Route: 048
     Dates: start: 20060814
  12. ENALAPRIL [Concomitant]
     Indication: HYPERTENSION
     Dosage: 10 MG, BID
     Route: 048
     Dates: start: 20041216
  13. AMITIZA [Concomitant]
     Indication: CONSTIPATION
     Dosage: 24 MEQ, QD
     Route: 048
     Dates: start: 20070521
  14. SYNTHROID [Concomitant]
     Dosage: 25 MEQ, QD
     Route: 048
  15. MS CONTIN [Concomitant]
     Dosage: 60 MG, BID
     Route: 048
  16. MS CONTIN [Concomitant]
     Dosage: 100 MG, BID
  17. CYMBALTA [Concomitant]
     Dosage: 309 MG, QD
     Route: 048
  18. DIFLUCAN [Concomitant]
     Dosage: 150 MG, QD
     Route: 048
  19. PREDNISONE [Concomitant]
     Dosage: 20 MG, BID
     Route: 048
  20. AVELOX [Concomitant]
     Dosage: 400 MG, UNK
     Route: 048
  21. NEXIUM [Concomitant]
     Dosage: 40 MG, BID
     Route: 048
  22. QVAR 40 [Concomitant]
     Dosage: 2 PUFFS
  23. METHADONE HCL [Concomitant]
     Dosage: 10 MG, TID
     Route: 048
  24. LEVAQUIN [Concomitant]
     Dosage: 500 MG, QD
     Route: 048
  25. LEVAQUIN [Concomitant]
     Dosage: 500 MG, QD
     Route: 048
  26. PREVACID [Concomitant]
     Indication: GASTROOESOPHAGEAL REFLUX DISEASE
     Dosage: 30 MG, QD
     Dates: start: 20060501
  27. ALBUTEROL [Concomitant]
     Indication: ASTHMA
     Dosage: 90 MEQ, PRN
     Dates: start: 20061030
  28. CEPHALEXIN [Concomitant]
     Dosage: 250 MG, TID
     Route: 048
  29. FOSAMAX [Concomitant]
     Indication: OSTEOPOROSIS
     Dosage: 70 MG EVERY WEEK
     Route: 048
     Dates: start: 20050621

REACTIONS (26)
  - ABSCESS [None]
  - ASTHMA [None]
  - BACK PAIN [None]
  - BLOOD GLUCOSE INCREASED [None]
  - CELLULITIS [None]
  - CERVICAL SPINAL STENOSIS [None]
  - CHEST PAIN [None]
  - CONDITION AGGRAVATED [None]
  - CONSTIPATION [None]
  - DEPRESSION [None]
  - DIZZINESS [None]
  - DYSPNOEA [None]
  - ERYTHEMA [None]
  - HAEMORRHAGE SUBCUTANEOUS [None]
  - INFLUENZA [None]
  - JOINT SPRAIN [None]
  - LIMB INJURY [None]
  - LIPOMA [None]
  - LOW DENSITY LIPOPROTEIN INCREASED [None]
  - NAIL TINEA [None]
  - PAIN IN EXTREMITY [None]
  - PALPITATIONS [None]
  - PARAESTHESIA [None]
  - PHARYNGITIS [None]
  - RESPIRATORY DISORDER [None]
  - THROMBOSIS [None]
